FAERS Safety Report 9676993 (Version 2)
Quarter: 2013Q4

REPORT INFORMATION
  Report Type: Spontaneous
  Country: TW (occurrence: TW)
  Receive Date: 20131108
  Receipt Date: 20131108
  Transmission Date: 20140711
  Serious: Yes (Hospitalization, Other)
  Sender: FDA-Public Use
  Company Number: TW-RANBAXY-2013RR-74213

PATIENT
  Age: 65 Year
  Sex: Male

DRUGS (1)
  1. METFORMIN [Suspect]
     Indication: DIABETES MELLITUS
     Dosage: UNK
     Route: 065

REACTIONS (3)
  - Lactic acidosis [Recovering/Resolving]
  - Acute respiratory failure [Recovering/Resolving]
  - Renal failure chronic [Recovering/Resolving]
